FAERS Safety Report 6983066-4 (Version None)
Quarter: 2010Q3

REPORT INFORMATION
  Report Type: 
  Country: None (occurrence: None)
  Receive Date: 20100914
  Receipt Date: 20100609
  Transmission Date: 20110219
  Serious: Yes (Death, Other)
  Sender: FDA-Public Use
  Company Number: US-PFIZER INC-2010067624

PATIENT
  Sex: Female
  Weight: 86.16 kg

DRUGS (7)
  1. LYRICA [Suspect]
     Indication: FIBROMYALGIA
     Dosage: UNK
     Route: 048
     Dates: start: 20080801
  2. SPIRIVA [Suspect]
     Indication: ASTHMA
     Dosage: UNK
     Route: 055
  3. HYDROCODONE [Suspect]
     Indication: PAIN
     Dosage: UNK
  4. AMITRIPTYLINE [Suspect]
     Indication: SLEEP DISORDER
     Dosage: UNK
  5. LORAZEPAM [Suspect]
     Indication: ANXIETY
     Dosage: UNK
  6. OXYGEN [Concomitant]
     Indication: ASTHMA
     Dosage: UNK
  7. OXYGEN [Concomitant]
     Indication: DYSPNOEA

REACTIONS (3)
  - COMPLETED SUICIDE [None]
  - INTENTIONAL OVERDOSE [None]
  - SUICIDAL IDEATION [None]
